FAERS Safety Report 6198055-X (Version None)
Quarter: 2009Q2

REPORT INFORMATION
  Report Type: 
  Country: None (occurrence: None)
  Receive Date: 20090513
  Receipt Date: 20080912
  Transmission Date: 20091009
  Serious: Yes (Hospitalization)
  Sender: FDA-Public Use
  Company Number: WWISSUE-215

PATIENT
  Sex: Male
  Weight: 57.6068 kg

DRUGS (12)
  1. DOXYCYCLINE HYCLATE [Suspect]
     Indication: MALARIA PROPHYLAXIS
     Dosage: 1 TAB/DAY FOR 4 DAYS
     Dates: start: 20080624, end: 20080628
  2. PREVASET [Concomitant]
  3. BACHOFIN [Concomitant]
  4. ZANIX [Concomitant]
  5. LOVESTATIN [Concomitant]
  6. NEURONTINE [Concomitant]
  7. TRAZODONE HCL [Concomitant]
  8. PRIMERONE [Concomitant]
  9. LYSTATINE [Concomitant]
  10. HYDROCODONE BITARTRATE [Concomitant]
  11. CA MF [Concomitant]
  12. VIT. D [Concomitant]

REACTIONS (3)
  - ABDOMINAL PAIN UPPER [None]
  - NAUSEA [None]
  - RASH [None]
